FAERS Safety Report 18466298 (Version 1)
Quarter: 2020Q4

REPORT INFORMATION
  Report Type: Spontaneous
  Country: CN (occurrence: CN)
  Receive Date: 20201105
  Receipt Date: 20201105
  Transmission Date: 20210114
  Serious: Yes (Other)
  Sender: FDA-Public Use
  Company Number: CN-BAXTER-2020BAX022458

PATIENT
  Age: 43 Year
  Sex: Female
  Weight: 51 kg

DRUGS (4)
  1. TAXOTERE [Suspect]
     Active Substance: DOCETAXEL
     Indication: BREAST CANCER FEMALE
     Dosage: FIRST CHEMOTHERAPY: DOCETAXEL 112 MG + NS 250 ML
     Route: 041
     Dates: start: 20200922, end: 20200922
  2. ENDOXAN [Suspect]
     Active Substance: CYCLOPHOSPHAMIDE
     Indication: BREAST CANCER FEMALE
     Dosage: FIRST CHEMOTHERAPY: CYCLOPHOSPHAMIDE 900 MG + NS 45 ML
     Route: 042
     Dates: start: 20200922, end: 20200922
  3. 0.9% SODIUM CHLORIDE INJECTION [Suspect]
     Active Substance: SODIUM CHLORIDE
     Indication: MEDICATION DILUTION
     Dosage: FIRST CHEMOTHERAPY: CYCLOPHOSPHAMIDE 900 MG + NS 45 ML
     Route: 042
     Dates: start: 20200922, end: 20200922
  4. 0.9% SODIUM CHLORIDE INJECTION [Suspect]
     Active Substance: SODIUM CHLORIDE
     Dosage: FIRST CHEMOTHERAPY: DOCETAXEL 112 MG + NS 250 ML
     Route: 041
     Dates: start: 20200922, end: 20200922

REACTIONS (1)
  - Agranulocytosis [Recovering/Resolving]

NARRATIVE: CASE EVENT DATE: 20200928
